FAERS Safety Report 9767346 (Version 2)
Quarter: 2014Q1

REPORT INFORMATION
  Report Type: Spontaneous
  Country: GB (occurrence: None)
  Receive Date: 20131213
  Receipt Date: 20140107
  Transmission Date: 20141002
  Serious: Yes (Death, Hospitalization, Disabling)
  Sender: FDA-Public Use
  Company Number: VAL_02860_2013

PATIENT
  Age: 71 Year
  Sex: Female
  Weight: 70 kg

DRUGS (5)
  1. METOPROLOL TARTRATE [Suspect]
     Indication: ATRIAL FIBRILLATION
     Route: 048
     Dates: start: 20130517, end: 20130517
  2. AMIODARONE (AMIODARONE) [Suspect]
     Indication: PRODUCT USED FOR UNKNOWN INDICATION
  3. LISINOPRIL [Concomitant]
  4. BUMETANIDE [Concomitant]
  5. LEVOTHYROXINE [Concomitant]

REACTIONS (22)
  - Shock [None]
  - Renal failure [None]
  - Feeling cold [None]
  - Hypoxia [None]
  - Syncope [None]
  - Cyanosis [None]
  - Loss of consciousness [None]
  - Dyspnoea [None]
  - Blood pressure immeasurable [None]
  - Pulse abnormal [None]
  - Cardiogenic shock [None]
  - Lactic acidosis [None]
  - Fluid imbalance [None]
  - Hyperhidrosis [None]
  - Cold sweat [None]
  - Ejection fraction decreased [None]
  - Activities of daily living impaired [None]
  - Labelled drug-drug interaction medication error [None]
  - Heart rate decreased [None]
  - Adverse drug reaction [None]
  - Fall [None]
  - Medication error [None]
